FAERS Safety Report 17018900 (Version 5)
Quarter: 2020Q1

REPORT INFORMATION
  Report Type: Spontaneous
  Country: PT (occurrence: PT)
  Receive Date: 20191112
  Receipt Date: 20200104
  Transmission Date: 20200409
  Serious: Yes (Death, Hospitalization, Other)
  Sender: FDA-Public Use
  Company Number: PT-AUROBINDO-AUR-APL-2019-071446

PATIENT
  Age: 74 Year
  Sex: Female

DRUGS (3)
  1. CEFTRIAXONE. [Suspect]
     Active Substance: CEFTRIAXONE
     Indication: URINARY TRACT INFECTION
  2. CEFTRIAXONE. [Suspect]
     Active Substance: CEFTRIAXONE
     Indication: KLEBSIELLA INFECTION
     Dosage: UNK
     Route: 065
  3. METFORMIN [Suspect]
     Active Substance: METFORMIN HYDROCHLORIDE
     Indication: TYPE 2 DIABETES MELLITUS
     Dosage: UNK
     Route: 065

REACTIONS (8)
  - Clostridium difficile infection [Fatal]
  - Metabolic acidosis [Recovered/Resolved]
  - Urinary tract infection [Unknown]
  - Acute kidney injury [Recovered/Resolved]
  - Pseudomembranous colitis [Fatal]
  - Condition aggravated [Unknown]
  - Klebsiella infection [Unknown]
  - Renal injury [Unknown]
